FAERS Safety Report 11155538 (Version 1)
Quarter: 2015Q2

REPORT INFORMATION
  Report Type: Spontaneous
  Country: US (occurrence: None)
  Receive Date: 20150601
  Receipt Date: 20150601
  Transmission Date: 20150821
  Serious: Yes (Life-Threatening)
  Sender: FDA-Public Use
  Company Number: None

PATIENT
  Age: 64 Year
  Sex: Male
  Weight: 61.69 kg

DRUGS (1)
  1. METHYLPREDNISOLONE. [Suspect]
     Active Substance: METHYLPREDNISOLONE
     Indication: ASTHMA
     Dates: start: 20150429, end: 20150429

REACTIONS (3)
  - Unresponsive to stimuli [None]
  - Urinary incontinence [None]
  - Anaphylactic reaction [None]

NARRATIVE: CASE EVENT DATE: 20150429
